FAERS Safety Report 16305421 (Version 2)
Quarter: 2019Q3

REPORT INFORMATION
  Report Type: Spontaneous
  Country: US (occurrence: US)
  Receive Date: 20190513
  Receipt Date: 20190730
  Transmission Date: 20191004
  Serious: Yes (Other)
  Sender: FDA-Public Use
  Company Number: US-ASTRAZENECA-2018SF34549

PATIENT
  Age: 65 Year
  Sex: Male
  Weight: 99.8 kg

DRUGS (27)
  1. AZITHROMYCIN ANHYDROUS. [Concomitant]
     Active Substance: AZITHROMYCIN ANHYDROUS
  2. CEFPODOXIME [Concomitant]
     Active Substance: CEFPODOXIME
  3. LIDOCAINE. [Concomitant]
     Active Substance: LIDOCAINE
  4. LISINOPRIL. [Concomitant]
     Active Substance: LISINOPRIL
  5. PRILOSEC OTC [Suspect]
     Active Substance: OMEPRAZOLE MAGNESIUM
     Indication: GASTROOESOPHAGEAL REFLUX DISEASE
     Route: 048
     Dates: start: 2005, end: 2016
  6. AMOXICILLIN. [Concomitant]
     Active Substance: AMOXICILLIN
  7. FLUTICASONE. [Concomitant]
     Active Substance: FLUTICASONE
  8. TOPIRAMATE. [Concomitant]
     Active Substance: TOPIRAMATE
  9. ALLOPURINOL. [Concomitant]
     Active Substance: ALLOPURINOL
  10. CIALIS [Concomitant]
     Active Substance: TADALAFIL
  11. MELOXICAM. [Concomitant]
     Active Substance: MELOXICAM
  12. SIMVASTATIN. [Concomitant]
     Active Substance: SIMVASTATIN
  13. METHOTREXATE. [Concomitant]
     Active Substance: METHOTREXATE
  14. PRILOSEC [Suspect]
     Active Substance: OMEPRAZOLE MAGNESIUM
     Indication: GASTROOESOPHAGEAL REFLUX DISEASE
     Dosage: GENERIC
     Route: 065
     Dates: start: 2016, end: 2018
  15. ACYCLOVIR. [Concomitant]
     Active Substance: ACYCLOVIR
  16. LEVITRA [Concomitant]
     Active Substance: VARDENAFIL HYDROCHLORIDE
  17. SERTRALINE [Concomitant]
     Active Substance: SERTRALINE HYDROCHLORIDE
  18. DICLOFENAC [Concomitant]
     Active Substance: DICLOFENAC
  19. SILDENAFIL. [Concomitant]
     Active Substance: SILDENAFIL
  20. TRAZODONE [Concomitant]
     Active Substance: TRAZODONE HYDROCHLORIDE
  21. PRILOSEC [Suspect]
     Active Substance: OMEPRAZOLE MAGNESIUM
     Indication: GASTROOESOPHAGEAL REFLUX DISEASE
     Route: 048
     Dates: start: 2005, end: 2016
  22. IBUPROFEN. [Concomitant]
     Active Substance: IBUPROFEN
  23. IPRATROPIUM [Concomitant]
     Active Substance: IPRATROPIUM
  24. SUMATRIPTAN. [Concomitant]
     Active Substance: SUMATRIPTAN
  25. TAMSULOSIN [Concomitant]
     Active Substance: TAMSULOSIN
  26. MIRTAZAPINE. [Concomitant]
     Active Substance: MIRTAZAPINE
  27. PREDNISONE. [Concomitant]
     Active Substance: PREDNISONE

REACTIONS (1)
  - Chronic kidney disease [Not Recovered/Not Resolved]
